FAERS Safety Report 5304219-7 (Version None)
Quarter: 2007Q2

REPORT INFORMATION
  Report Type: 
  Country: None (occurrence: None)
  Receive Date: 20070423
  Receipt Date: 20070416
  Transmission Date: 20071010
  Serious: Yes (Hospitalization)
  Sender: FDA-Public Use
  Company Number: PHEH2007US05519

PATIENT
  Age: 47 Year
  Sex: Female

DRUGS (7)
  1. ZELNORM [Suspect]
     Indication: IRRITABLE BOWEL SYNDROME
     Dosage: 6 MG, BID
     Dates: start: 20040101, end: 20040101
  2. LORCET-HD [Concomitant]
     Indication: BACK PAIN
     Dosage: 10 MG, PRN
  3. AMBIEN [Concomitant]
  4. LIPITOR [Concomitant]
     Dosage: 20 MG, UNK
  5. GLIMEPIRIDE [Concomitant]
     Dosage: 4 MG, UNK
  6. METFORMIN HCL [Concomitant]
     Dosage: 1000 MG, BID
  7. PLAVIX [Concomitant]

REACTIONS (4)
  - DIARRHOEA [None]
  - HYPERTENSION [None]
  - OEDEMA PERIPHERAL [None]
  - STENT PLACEMENT [None]
